FAERS Safety Report 22195643 (Version 1)
Quarter: 2023Q2

REPORT INFORMATION
  Report Type: Other
  Country: US (occurrence: US)
  Receive Date: 20230411
  Receipt Date: 20230411
  Transmission Date: 20230722
  Serious: Yes (Death)
  Sender: FDA-Public Use
  Company Number: US-ALVOGEN-2023089512

PATIENT
  Age: 41 Year
  Sex: Female

DRUGS (2)
  1. FLUOXETINE [Suspect]
     Active Substance: FLUOXETINE HYDROCHLORIDE
     Indication: Drug abuse
  2. ALCOHOL [Suspect]
     Active Substance: ALCOHOL
     Indication: Drug abuse

REACTIONS (1)
  - Drug abuse [Fatal]
